FAERS Safety Report 26075184 (Version 1)
Quarter: 2025Q4

REPORT INFORMATION
  Report Type: Spontaneous
  Country: EU (occurrence: EU)
  Receive Date: 20251121
  Receipt Date: 20251121
  Transmission Date: 20260117
  Serious: Yes (Death)
  Sender: TEVA
  Company Number: None

PATIENT
  Age: 64 Year
  Sex: Male
  Weight: 60 kg

DRUGS (4)
  1. ETOPOSIDE [Suspect]
     Active Substance: ETOPOSIDE
     Indication: High grade B-cell lymphoma Burkitt-like lymphoma
     Route: 042
     Dates: start: 20251010, end: 20251010
  2. RITUXIMAB [Suspect]
     Active Substance: RITUXIMAB
     Indication: High grade B-cell lymphoma Burkitt-like lymphoma
     Dosage: RITUXIMAB ((MAMMIFERE/HAMSTER/CELLULES CHO))
     Route: 042
     Dates: start: 20251010, end: 20251010
  3. IFOSFAMIDE [Suspect]
     Active Substance: IFOSFAMIDE
     Indication: High grade B-cell lymphoma Burkitt-like lymphoma
     Route: 042
     Dates: start: 20251010, end: 20251010
  4. CARBOPLATIN [Suspect]
     Active Substance: CARBOPLATIN
     Indication: High grade B-cell lymphoma Burkitt-like lymphoma
     Route: 042
     Dates: start: 20251010, end: 20251010

REACTIONS (3)
  - Febrile bone marrow aplasia [Fatal]
  - Sepsis [Fatal]
  - Tumour lysis syndrome [Fatal]

NARRATIVE: CASE EVENT DATE: 20251015
